FAERS Safety Report 21397954 (Version 1)
Quarter: 2022Q3

REPORT INFORMATION
  Report Type: Spontaneous
  Country: BR (occurrence: BR)
  Receive Date: 20220930
  Receipt Date: 20220930
  Transmission Date: 20221027
  Serious: Yes (Life-Threatening, Other)
  Sender: FDA-Public Use
  Company Number: BR-TAKEDA-2022TUS068426

PATIENT
  Sex: Male

DRUGS (1)
  1. LISDEXAMFETAMINE DIMESYLATE [Suspect]
     Active Substance: LISDEXAMFETAMINE DIMESYLATE
     Indication: Product used for unknown indication
     Route: 065

REACTIONS (9)
  - Dyspnoea [Unknown]
  - Toxicity to various agents [Unknown]
  - Product label confusion [Unknown]
  - Dyskinesia [Unknown]
  - Tongue biting [Unknown]
  - Fatigue [Unknown]
  - Confusional state [Unknown]
  - Incoherent [Unknown]
  - Delusion [Unknown]
